FAERS Safety Report 7003695-1 (Version None)
Quarter: 2010Q3

REPORT INFORMATION
  Report Type: 
  Country: None (occurrence: None)
  Receive Date: 20100920
  Receipt Date: 20090312
  Transmission Date: 20110219
  Serious: No
  Sender: FDA-Public Use
  Company Number: US-WYE-H08580909

PATIENT
  Sex: Female
  Weight: 41.77 kg

DRUGS (3)
  1. PROTONIX [Suspect]
     Indication: ULCER
     Dosage: UNKNOWN
     Route: 048
     Dates: start: 20070101, end: 20090226
  2. CORTISONE ACETATE [Concomitant]
  3. ADVIL LIQUI-GELS [Concomitant]

REACTIONS (1)
  - INTENTIONAL DRUG MISUSE [None]
